FAERS Safety Report 14777133 (Version 1)
Quarter: 2018Q2

REPORT INFORMATION
  Report Type: Spontaneous
  Country: ES (occurrence: ES)
  Receive Date: 20180419
  Receipt Date: 20180419
  Transmission Date: 20180711
  Serious: Yes (Other)
  Sender: FDA-Public Use
  Company Number: ES-BRISTOL-MYERS SQUIBB COMPANY-BMS-2018-033699

PATIENT
  Age: 83 Year
  Sex: Male

DRUGS (5)
  1. MEROPENEM ANHYDROUS [Suspect]
     Active Substance: MEROPENEM ANHYDROUS
     Indication: BACTERIAL SEPSIS
     Dosage: 1 G, Q12H
     Route: 042
     Dates: start: 20180128, end: 20180207
  2. AMIKACIN SULPHATE [Concomitant]
     Active Substance: AMIKACIN SULFATE
     Indication: BACTERIAL SEPSIS
     Dosage: 1 GTT, EVERY 48 HOURS
     Route: 042
     Dates: start: 20180130, end: 20180213
  3. CLOXACILINA /00012002/ [Suspect]
     Active Substance: CLOXACILLIN SODIUM
     Indication: BACTERIAL SEPSIS
     Dosage: 1 G, Q4H
     Route: 042
     Dates: start: 20180115, end: 20180207
  4. AZTREONAM. [Suspect]
     Active Substance: AZTREONAM
     Indication: BACTERIAL SEPSIS
     Dosage: 1 G, Q12H
     Route: 042
     Dates: start: 20180128, end: 20180128
  5. DAPTOMYCIN. [Concomitant]
     Active Substance: DAPTOMYCIN
     Indication: BACTERIAL SEPSIS
     Dosage: 480 MG, Q12H
     Route: 042
     Dates: start: 20180116, end: 20180213

REACTIONS (1)
  - Agranulocytosis [Recovered/Resolved]

NARRATIVE: CASE EVENT DATE: 20180204
